FAERS Safety Report 11346584 (Version 1)
Quarter: 2015Q3

REPORT INFORMATION
  Report Type: Spontaneous
  Country: US (occurrence: US)
  Receive Date: 20150803
  Receipt Date: 20150803
  Transmission Date: 20151125
  Serious: No
  Sender: FDA-Public Use
  Company Number: US-ELI_LILLY_AND_COMPANY-US201009000170

PATIENT
  Sex: Female
  Weight: 72.11 kg

DRUGS (6)
  1. STRATTERA [Suspect]
     Active Substance: ATOMOXETINE HYDROCHLORIDE
     Indication: ATTENTION DEFICIT/HYPERACTIVITY DISORDER
     Dosage: 18 MG, EACH EVENING
     Dates: start: 20100801, end: 20100805
  2. STRATTERA [Suspect]
     Active Substance: ATOMOXETINE HYDROCHLORIDE
     Dosage: 25 MG, EACH EVENING
     Dates: start: 20100806, end: 20100810
  3. STRATTERA [Suspect]
     Active Substance: ATOMOXETINE HYDROCHLORIDE
     Dosage: 60 MG, EACH EVENING
     Dates: start: 20100816, end: 20100824
  4. STRATTERA [Suspect]
     Active Substance: ATOMOXETINE HYDROCHLORIDE
     Dosage: 60 MG, EACH MORNING
     Dates: start: 20100825
  5. STRATTERA [Suspect]
     Active Substance: ATOMOXETINE HYDROCHLORIDE
     Dosage: 40 MG, EACH EVENING
     Dates: start: 20100811, end: 20100815
  6. IBUPROFEN. [Concomitant]
     Active Substance: IBUPROFEN
     Indication: DYSMENORRHOEA

REACTIONS (6)
  - Insomnia [Not Recovered/Not Resolved]
  - Headache [Not Recovered/Not Resolved]
  - Dry mouth [Not Recovered/Not Resolved]
  - Blepharospasm [Recovered/Resolved]
  - Dizziness [Not Recovered/Not Resolved]
  - Nightmare [Not Recovered/Not Resolved]

NARRATIVE: CASE EVENT DATE: 20100801
